FAERS Safety Report 6769091-7 (Version None)
Quarter: 2010Q2

REPORT INFORMATION
  Report Type: 
  Country: None (occurrence: None)
  Receive Date: 20100604
  Receipt Date: 20100528
  Transmission Date: 20101027
  Serious: Yes (Other)
  Sender: FDA-Public Use
  Company Number: 2009SP038485

PATIENT
  Age: 50 Year
  Sex: Male

DRUGS (1)
  1. DESLORATADINE [Suspect]
     Indication: MULTIPLE ALLERGIES
     Dosage: 5 MG; QD; PO
     Route: 048

REACTIONS (3)
  - ALCOHOL INTERACTION [None]
  - ALCOHOL POISONING [None]
  - FEELING DRUNK [None]
